FAERS Safety Report 24604161 (Version 1)
Quarter: 2024Q4

REPORT INFORMATION
  Report Type: Spontaneous
  Country: MA (occurrence: MA)
  Receive Date: 20241111
  Receipt Date: 20241111
  Transmission Date: 20250115
  Serious: Yes (Death, Hospitalization)
  Sender: PFIZER
  Company Number: MA-PFIZER INC-PV202400145600

PATIENT
  Sex: Female

DRUGS (1)
  1. IBRANCE [Suspect]
     Active Substance: PALBOCICLIB
     Dosage: 100 UNK
     Route: 048
     Dates: start: 20221103, end: 20241013

REACTIONS (1)
  - Death [Fatal]

NARRATIVE: CASE EVENT DATE: 20241013
